FAERS Safety Report 25090439 (Version 1)
Quarter: 2025Q1

REPORT INFORMATION
  Report Type: Spontaneous
  Country: FR (occurrence: FR)
  Receive Date: 20250318
  Receipt Date: 20250318
  Transmission Date: 20250409
  Serious: Yes (Hospitalization)
  Sender: MYLAN
  Company Number: None

PATIENT
  Age: 58 Year
  Sex: Male
  Weight: 71 kg

DRUGS (9)
  1. SERTRALINE [Suspect]
     Active Substance: SERTRALINE HYDROCHLORIDE
     Indication: Depression
     Dosage: 50 MILLIGRAM, QD
     Dates: start: 20241221, end: 20241231
  2. ZILBRYSQ [Suspect]
     Active Substance: ZILUCOPLAN
     Indication: Muscular weakness
     Dosage: 32.4 MILLIGRAM, QD
     Dates: start: 20240628
  3. MESTINON [Concomitant]
     Active Substance: PYRIDOSTIGMINE BROMIDE
  4. KARDEGIC [Concomitant]
     Active Substance: ASPIRIN DL-LYSINE
  5. LOVENOX [Concomitant]
     Active Substance: ENOXAPARIN SODIUM
  6. PREDNISONE [Concomitant]
     Active Substance: PREDNISONE
  7. MELATONIN [Concomitant]
     Active Substance: MELATONIN
  8. CALCIUM CARBONATE\CHOLECALCIFEROL [Concomitant]
     Active Substance: CALCIUM CARBONATE\CHOLECALCIFEROL
  9. POLYETHYLENE GLYCOLS [Concomitant]
     Active Substance: POLYETHYLENE GLYCOLS

REACTIONS (2)
  - Hyponatraemia [Recovered/Resolved]
  - Morvan syndrome [Recovering/Resolving]

NARRATIVE: CASE EVENT DATE: 20241201
